FAERS Safety Report 4615768-9 (Version None)
Quarter: 2005Q1

REPORT INFORMATION
  Report Type: 
  Country: None (occurrence: None)
  Receive Date: 20050317
  Receipt Date: 20050307
  Transmission Date: 20050727
  Serious: Yes (Hospitalization, Other)
  Sender: FDA-Public Use
  Company Number: KII-2005-0015437

PATIENT
  Age: 34 Year
  Sex: Male

DRUGS (2)
  1. MORPHINE SULFATE [Suspect]
  2. BENZODIAZEPINE DERIVATIVES [Suspect]

REACTIONS (16)
  - BLOOD PH DECREASED [None]
  - BLOOD POTASSIUM INCREASED [None]
  - CARDIAC DISORDER [None]
  - COMA [None]
  - CONFUSIONAL STATE [None]
  - DISORIENTATION [None]
  - DRUG SCREEN POSITIVE [None]
  - DRUG WITHDRAWAL SYNDROME [None]
  - HEPATITIS [None]
  - HYPOXIA [None]
  - INTENTIONAL MISUSE [None]
  - MENTAL STATUS CHANGES [None]
  - MYOCARDIAL INFARCTION [None]
  - RENAL FAILURE ACUTE [None]
  - RESPIRATORY RATE DECREASED [None]
  - RHABDOMYOLYSIS [None]
